FAERS Safety Report 19100388 (Version 1)
Quarter: 2021Q2

REPORT INFORMATION
  Report Type: Report from Study
  Country: CA (occurrence: CA)
  Receive Date: 20210407
  Receipt Date: 20210407
  Transmission Date: 20210717
  Serious: Yes (Other)
  Sender: FDA-Public Use
  Company Number: CA-JNJFOC-20210401865

PATIENT
  Age: 48 Year
  Sex: Female

DRUGS (1)
  1. REMICADE [Suspect]
     Active Substance: INFLIXIMAB
     Indication: CROHN^S DISEASE
     Dosage: ON 23?FEB?2021, THE PATIENT RECEIVED THE INFUSION
     Route: 042

REACTIONS (2)
  - Sjogren^s syndrome [Unknown]
  - Systemic lupus erythematosus [Unknown]

NARRATIVE: CASE EVENT DATE: 202103
